FAERS Safety Report 5056832-2 (Version None)
Quarter: 2006Q2

REPORT INFORMATION
  Report Type: 
  Country: None (occurrence: None)
  Receive Date: 20060620
  Receipt Date: 20050922
  Transmission Date: 20061013
  Serious: Yes (Hospitalization)
  Sender: FDA-Public Use
  Company Number: 05US000691

PATIENT
  Age: 29 Year
  Sex: Male
  Weight: 172.3 kg

DRUGS (6)
  1. LITHOBID [Suspect]
     Indication: BIPOLAR DISORDER
     Dosage: ORAL
     Route: 048
     Dates: start: 19970101, end: 20020101
  2. LITHOBID [Suspect]
     Indication: BIPOLAR DISORDER
     Dosage: ORAL
     Route: 048
     Dates: end: 20050901
  3. LITHOBID [Suspect]
     Indication: BIPOLAR DISORDER
     Dosage: ORAL
     Route: 048
     Dates: start: 20050901
  4. HYZAAR [Concomitant]
  5. RISPERDAL [Concomitant]
  6. ABILIFY [Concomitant]

REACTIONS (3)
  - HYPERTENSION [None]
  - THERAPEUTIC AGENT TOXICITY [None]
  - WEIGHT INCREASED [None]
